FAERS Safety Report 25744584 (Version 2)
Quarter: 2025Q3

REPORT INFORMATION
  Report Type: Spontaneous
  Country: US (occurrence: US)
  Receive Date: 20250901
  Receipt Date: 20250902
  Transmission Date: 20251021
  Serious: No
  Sender: ENDO
  Company Number: US-ENDO USA, INC.-2025-001191

PATIENT
  Age: 82 Year
  Sex: Male

DRUGS (4)
  1. PREDNISONE [Suspect]
     Active Substance: PREDNISONE
     Indication: Product used for unknown indication
     Route: 065
  2. PREDNISONE [Suspect]
     Active Substance: PREDNISONE
     Route: 065
  3. DUPIXENT [Suspect]
     Active Substance: DUPILUMAB
     Indication: Eczema
     Dosage: 300 MILLIGRAM, SINGLE (LOADING DOSE)
     Route: 058
  4. DUPIXENT [Suspect]
     Active Substance: DUPILUMAB
     Indication: Dermatitis
     Dosage: 300 MILLIGRAM, BIWEEKLY (QOW)
     Route: 058
     Dates: start: 202501

REACTIONS (10)
  - Oedema peripheral [Unknown]
  - Condition aggravated [Unknown]
  - Blister [Unknown]
  - Mobility decreased [Unknown]
  - Rash pruritic [Unknown]
  - Skin disorder [Unknown]
  - Pain [Unknown]
  - Back pain [Unknown]
  - Dermatitis [Recovering/Resolving]
  - Arthralgia [Unknown]

NARRATIVE: CASE EVENT DATE: 20250101
